FAERS Safety Report 7131047-2 (Version None)
Quarter: 2010Q4

REPORT INFORMATION
  Report Type: 
  Country: None (occurrence: None)
  Receive Date: 20101201
  Receipt Date: 20101123
  Transmission Date: 20110411
  Serious: Yes (Hospitalization)
  Sender: FDA-Public Use
  Company Number: US-GENZYME-CERZ-1001638

PATIENT
  Sex: Female

DRUGS (13)
  1. CEREZYME [Suspect]
     Indication: GAUCHER'S DISEASE
     Dosage: 3600 U, Q2W
     Route: 042
     Dates: start: 20101001
  2. CEREZYME [Suspect]
     Dosage: 3200 U, Q2W
     Route: 042
     Dates: start: 19981110, end: 20100303
  3. CEREZYME [Suspect]
     Dosage: 2000 U, Q2W
     Route: 042
     Dates: start: 20100408, end: 20100901
  4. WARFARIN [Concomitant]
     Indication: PULMONARY THROMBOSIS
     Route: 065
  5. FOSAMAX [Concomitant]
     Indication: PRODUCT USED FOR UNKNOWN INDICATION
     Dosage: 70 MG, 1X/W
     Route: 048
  6. LOVENOX [Concomitant]
     Indication: PRODUCT USED FOR UNKNOWN INDICATION
     Dosage: 80 MG, Q12HR
     Route: 058
  7. GABAPENTIN [Concomitant]
     Indication: PRODUCT USED FOR UNKNOWN INDICATION
     Dosage: 200 MG, Q12HR
     Route: 048
  8. SYNTHROID [Concomitant]
     Indication: PRODUCT USED FOR UNKNOWN INDICATION
     Dosage: 100 MCG, QD
     Route: 048
  9. METOPROLOL [Concomitant]
     Indication: PRODUCT USED FOR UNKNOWN INDICATION
     Dosage: 50 MG, QD
     Route: 048
  10. SINGULAIR [Concomitant]
     Indication: PRODUCT USED FOR UNKNOWN INDICATION
     Dosage: 10 MG, QD
     Route: 048
  11. ZAVESCA [Concomitant]
     Indication: GAUCHER'S DISEASE
     Dosage: 100 MG, QD
     Route: 048
  12. LIPITOR [Concomitant]
     Indication: PRODUCT USED FOR UNKNOWN INDICATION
     Dosage: 10 MG, QD
     Route: 048
  13. ALBUTEROL [Concomitant]
     Indication: ASTHMA
     Dosage: UNK
     Route: 048

REACTIONS (5)
  - CHILLS [None]
  - FALL [None]
  - FOOT FRACTURE [None]
  - PULMONARY EMBOLISM [None]
  - PYREXIA [None]
